FAERS Safety Report 9271296 (Version 3)
Quarter: 2013Q2

REPORT INFORMATION
  Report Type: Spontaneous
  Country: JP (occurrence: JP)
  Receive Date: 20130506
  Receipt Date: 20130607
  Transmission Date: 20140414
  Serious: Yes (Life-Threatening)
  Sender: FDA-Public Use
  Company Number: JP-JNJFOC-20130500737

PATIENT
  Age: 72 Year
  Sex: Female
  Weight: 42 kg

DRUGS (7)
  1. XARELTO [Suspect]
     Indication: CEREBROVASCULAR ACCIDENT PROPHYLAXIS
     Route: 048
     Dates: start: 20130315, end: 20130425
  2. XARELTO [Suspect]
     Indication: ATRIAL FIBRILLATION
     Route: 048
     Dates: start: 20130315, end: 20130425
  3. RENIVACE [Concomitant]
     Indication: CARDIAC FAILURE CHRONIC
     Route: 048
  4. ROZEREM [Concomitant]
     Indication: INSOMNIA
     Route: 048
     Dates: start: 20130323, end: 20130425
  5. TAKEPRON [Concomitant]
     Indication: GASTRITIS
     Route: 048
  6. ARTIST [Concomitant]
     Indication: ATRIAL FIBRILLATION
     Route: 048
     Dates: start: 20130309
  7. BEPRIDIL [Concomitant]
     Indication: ATRIAL FIBRILLATION
     Route: 048
     Dates: start: 20130325, end: 20130425

REACTIONS (1)
  - Cardiac tamponade [Recovered/Resolved]
